FAERS Safety Report 6583760-3 (Version None)
Quarter: 2010Q1

REPORT INFORMATION
  Report Type: 
  Country: None (occurrence: None)
  Receive Date: 20100213
  Receipt Date: 20100213
  Transmission Date: 20100710
  Serious: Yes (Hospitalization, Disabling, Other)
  Sender: FDA-Public Use
  Company Number: None

PATIENT
  Age: 65 Year
  Sex: Female
  Weight: 66.2252 kg

DRUGS (1)
  1. LEVAQUIN [Suspect]
     Indication: SINUSITIS
     Dosage: ONE TABLET EVERYDAY PO
     Route: 048
     Dates: start: 20100114, end: 20100122

REACTIONS (8)
  - APRAXIA [None]
  - ARTHRALGIA [None]
  - DYSPNOEA [None]
  - FATIGUE [None]
  - MUSCULAR WEAKNESS [None]
  - MUSCULOSKELETAL PAIN [None]
  - PAIN IN EXTREMITY [None]
  - WALKING AID USER [None]
